FAERS Safety Report 13706094 (Version 1)
Quarter: 2017Q2

REPORT INFORMATION
  Report Type: Spontaneous
  Country: US (occurrence: US)
  Receive Date: 20170630
  Receipt Date: 20170630
  Transmission Date: 20170830
  Serious: Yes (Other)
  Sender: FDA-Public Use
  Company Number: US-BAYER-2017-121499

PATIENT
  Age: 87 Year
  Sex: Female
  Weight: 67.98 kg

DRUGS (1)
  1. MIRALAX [Suspect]
     Active Substance: POLYETHYLENE GLYCOL 3350
     Indication: GASTROINTESTINAL DISORDER
     Dosage: UNK UNK, PRN
     Route: 048
     Dates: start: 2015, end: 20170621

REACTIONS (8)
  - Product use issue [Unknown]
  - Genital discomfort [Unknown]
  - Frequent bowel movements [Unknown]
  - Drug use disorder [Unknown]
  - Product use issue [Unknown]
  - Drug intolerance [Unknown]
  - Incorrect drug administration duration [Unknown]
  - Burning sensation [Unknown]

NARRATIVE: CASE EVENT DATE: 2015
